FAERS Safety Report 18307237 (Version 1)
Quarter: 2020Q3

REPORT INFORMATION
  Report Type: Report from Study
  Country: US (occurrence: US)
  Receive Date: 20200924
  Receipt Date: 20200924
  Transmission Date: 20201103
  Serious: Yes (Life-Threatening, Hospitalization)
  Sender: FDA-Public Use
  Company Number: NVSC2020US259740

PATIENT
  Sex: Female
  Weight: 48.1 kg

DRUGS (2)
  1. GSK1120212 [Suspect]
     Active Substance: TRAMETINIB
     Indication: TUMOUR PAIN
     Dosage: 2 MG, QD
     Route: 048
     Dates: start: 20171005
  2. DABRAFENIB [Suspect]
     Active Substance: DABRAFENIB
     Indication: PRODUCT USED FOR UNKNOWN INDICATION
     Dosage: 150 MG, BID
     Route: 048
     Dates: start: 20171005

REACTIONS (1)
  - Small intestine ulcer [Recovered/Resolved with Sequelae]

NARRATIVE: CASE EVENT DATE: 20200903
